FAERS Safety Report 9995597 (Version 2)
Quarter: 2014Q1

REPORT INFORMATION
  Report Type: Spontaneous
  Country: IT (occurrence: None)
  Receive Date: 20140307
  Receipt Date: 20140310
  Transmission Date: 20141002
  Serious: Yes (Other)
  Sender: FDA-Public Use
  Company Number: 2014055253

PATIENT
  Age: 67 Year
  Sex: Female
  Weight: 43 kg

DRUGS (3)
  1. DALTEPARIN SODIUM (DALTEPARIN SODIUM) UNKNOWN [Suspect]
     Indication: PROPHYLAXIS
     Route: 058
  2. KETOROLAC TROMETHAMINE [Suspect]
     Indication: PROPHYLAXIS
     Dosage: , 3X/DAY
  3. EPOPROSTENOL SODIUM (EPOPROSTENOL SODIUM) [Concomitant]

REACTIONS (6)
  - Drug interaction [None]
  - Epidural haemorrhage [None]
  - Paraplegia [None]
  - Spinal cord compression [None]
  - Pleuritic pain [None]
  - Post procedural haematoma [None]
